FAERS Safety Report 7595749-6 (Version None)
Quarter: 2011Q3

REPORT INFORMATION
  Report Type: 
  Country: None (occurrence: None)
  Receive Date: 20110707
  Receipt Date: 20110704
  Transmission Date: 20111222
  Serious: Yes (Other)
  Sender: FDA-Public Use
  Company Number: HU-PFIZER INC-2011149693

PATIENT
  Age: 62 Year
  Sex: Female
  Weight: 65 kg

DRUGS (11)
  1. ASPIRIN [Concomitant]
     Dosage: UNK
  2. TRENTAL [Concomitant]
     Dosage: UNK
  3. BETAHISTINE [Concomitant]
     Dosage: UNK
  4. LUCETAM [Concomitant]
     Dosage: UNK
  5. LYRICA [Suspect]
     Dosage: 150 MG, 1X/DAY
  6. BETALOC [Concomitant]
     Dosage: UNK
  7. ESOMEPRAZOLE [Concomitant]
     Dosage: UNK
  8. MEFORAL [Concomitant]
     Dosage: UNK
     Dates: start: 20110101
  9. THIOGAMMA [Concomitant]
     Dosage: UNK
     Dates: start: 20110615
  10. LYRICA [Suspect]
     Dosage: 150 MG, 2X/DAY
     Dates: start: 20110601
  11. ENALAPRIL MALEATE [Concomitant]
     Dosage: UNK

REACTIONS (2)
  - APHASIA [None]
  - BALANCE DISORDER [None]
